FAERS Safety Report 10658391 (Version 1)
Quarter: 2014Q4

REPORT INFORMATION
  Report Type: Spontaneous
  Country: US (occurrence: None)
  Receive Date: 20141205
  Receipt Date: 20141205
  Transmission Date: 20150529
  Serious: Yes (Hospitalization)
  Sender: FDA-Public Use
  Company Number: USA-2014111182

PATIENT
  Age: 62 Year
  Sex: Female
  Weight: 62.6 kg

DRUGS (11)
  1. LISINOPRIL (LISINOPRIL) [Concomitant]
     Active Substance: LISINOPRIL
  2. TRAMADOL (TRAMADOL) [Concomitant]
     Active Substance: TRAMADOL
  3. MEGACE [Concomitant]
     Active Substance: MEGESTROL ACETATE
  4. COMPAZINE [Concomitant]
     Active Substance: PROCHLORPERAZINE MALEATE
  5. ALBUTEROL (SALBUTAMOL) [Concomitant]
     Active Substance: ALBUTEROL
  6. ACYCLOVIR (ACICLOVIR) [Concomitant]
  7. AMLODIPINE [Concomitant]
     Active Substance: AMLODIPINE BESYLATE
  8. PRILOSEC (OMEPRAZOLE) [Concomitant]
     Active Substance: OMEPRAZOLE MAGNESIUM
  9. ZOMETA [Concomitant]
     Active Substance: ZOLEDRONIC ACID
  10. POMALYST [Suspect]
     Active Substance: POMALIDOMIDE
     Indication: PLASMA CELL MYELOMA
     Route: 048
     Dates: start: 20140717
  11. ATIVAN [Concomitant]
     Active Substance: LORAZEPAM

REACTIONS (4)
  - Sepsis [None]
  - Pyrexia [None]
  - Urinary tract infection [None]
  - Blood potassium decreased [None]

NARRATIVE: CASE EVENT DATE: 201410
